FAERS Safety Report 9693238 (Version 1)
Quarter: 2013Q4

REPORT INFORMATION
  Report Type: Spontaneous
  Country: US (occurrence: GB)
  Receive Date: 20131118
  Receipt Date: 20131118
  Transmission Date: 20140711
  Serious: Yes (Other)
  Sender: FDA-Public Use
  Company Number: GB-IPSEN BIOPHARMACEUTICALS, INC.-2013-5014

PATIENT
  Sex: Female

DRUGS (3)
  1. AZZALURE [Suspect]
     Indication: SKIN COSMETIC PROCEDURE
     Dosage: NOT REPORTED
     Route: 030
     Dates: start: 20121112, end: 20121112
  2. AZZALURE [Suspect]
     Indication: OFF LABEL USE
  3. EVENING PRIMROSE OIL [Concomitant]
     Indication: PRODUCT USED FOR UNKNOWN INDICATION
     Dosage: NOT REPORTED
     Route: 065

REACTIONS (2)
  - Conjunctival haemorrhage [Recovered/Resolved with Sequelae]
  - Conjunctival hyperaemia [Not Recovered/Not Resolved]
